FAERS Safety Report 10257344 (Version 1)
Quarter: 2014Q2

REPORT INFORMATION
  Report Type: Spontaneous
  Country: US (occurrence: None)
  Receive Date: 20140623
  Receipt Date: 20140623
  Transmission Date: 20141212
  Serious: No
  Sender: FDA-Public Use
  Company Number: None

PATIENT
  Sex: 0

DRUGS (1)
  1. BUPRENORPHINE/NALOXONE [Suspect]
     Indication: DRUG DEPENDENCE

REACTIONS (4)
  - Drug ineffective [None]
  - Product quality issue [None]
  - Drug effect decreased [None]
  - Incorrect dose administered [None]
